FAERS Safety Report 6316909-8 (Version None)
Quarter: 2009Q3

REPORT INFORMATION
  Report Type: 
  Country: None (occurrence: None)
  Receive Date: 20090820
  Receipt Date: 20090820
  Transmission Date: 20100115
  Serious: Yes (Other)
  Sender: FDA-Public Use
  Company Number: US-PFIZER INC-2009242912

PATIENT
  Sex: Female
  Weight: 54.422 kg

DRUGS (4)
  1. LYRICA [Suspect]
     Indication: PAIN
     Dosage: 75 MG, 2X/DAY
     Route: 048
     Dates: start: 20070101, end: 20070301
  2. PHOSPHATIDYL SERINE [Concomitant]
     Dosage: UNK
     Route: 048
  3. GINKO BILOBA [Concomitant]
     Dosage: UNK
     Route: 048
  4. VITAMIN B COMPLEX CAP [Concomitant]
     Dosage: UNK
     Route: 048

REACTIONS (17)
  - ABASIA [None]
  - CARDIAC DISORDER [None]
  - CARDIOVASCULAR DISORDER [None]
  - COORDINATION ABNORMAL [None]
  - CYANOSIS [None]
  - DIZZINESS [None]
  - DYSGRAPHIA [None]
  - ERYTHEMA [None]
  - EXERCISE TOLERANCE DECREASED [None]
  - FALL [None]
  - GAIT DISTURBANCE [None]
  - HEAD INJURY [None]
  - MUSCULOSKELETAL STIFFNESS [None]
  - SWELLING [None]
  - TEMPERATURE INTOLERANCE [None]
  - TINNITUS [None]
  - TOOTH DISCOLOURATION [None]
